FAERS Safety Report 22751646 (Version 4)
Quarter: 2024Q3

REPORT INFORMATION
  Report Type: Spontaneous
  Country: US (occurrence: US)
  Receive Date: 20230726
  Receipt Date: 20240718
  Transmission Date: 20241017
  Serious: No
  Sender: PFIZER
  Company Number: US-PFIZER INC-PV202300126795

PATIENT
  Age: 28 Year
  Sex: Female

DRUGS (3)
  1. MEDROXYPROGESTERONE ACETATE [Suspect]
     Active Substance: MEDROXYPROGESTERONE ACETATE
     Indication: Menstruation irregular
     Dosage: UNK
  2. MEDROXYPROGESTERONE ACETATE [Suspect]
     Active Substance: MEDROXYPROGESTERONE ACETATE
     Indication: Endometriosis
     Dosage: 150 MG (FREQUENCY: EVERY 12 WEEKS)
     Route: 030
  3. MEDROXYPROGESTERONE ACETATE [Suspect]
     Active Substance: MEDROXYPROGESTERONE ACETATE
     Indication: Pelvic pain

REACTIONS (3)
  - Poor quality device used [Unknown]
  - Device leakage [Unknown]
  - Off label use [Unknown]
